FAERS Safety Report 24555536 (Version 4)
Quarter: 2025Q1

REPORT INFORMATION
  Report Type: Spontaneous
  Country: PL (occurrence: PL)
  Receive Date: 20241028
  Receipt Date: 20250219
  Transmission Date: 20250408
  Serious: Yes (Hospitalization)
  Sender: ELI LILLY AND COMPANY
  Company Number: PL-ROCHE-10000105669

PATIENT
  Age: 71 Year
  Sex: Male
  Weight: 59.65 kg

DRUGS (14)
  1. PIRTOBRUTINIB [Suspect]
     Active Substance: PIRTOBRUTINIB
     Indication: Chronic lymphocytic leukaemia
     Dosage: 200 MG, DAILY
     Route: 048
     Dates: start: 20230509, end: 20240926
  2. PIRTOBRUTINIB [Suspect]
     Active Substance: PIRTOBRUTINIB
     Dosage: 200 MG, DAILY
     Route: 048
     Dates: start: 20241001
  3. VENCLEXTA [Suspect]
     Active Substance: VENETOCLAX
     Indication: Chronic lymphocytic leukaemia
     Dosage: 400 MG, DAILY
     Route: 048
     Dates: start: 20230509, end: 20240926
  4. VENCLEXTA [Suspect]
     Active Substance: VENETOCLAX
     Dosage: 400 MG, DAILY
     Route: 048
     Dates: start: 20241001
  5. RITUXIMAB [Suspect]
     Active Substance: RITUXIMAB
     Indication: Chronic lymphocytic leukaemia
     Route: 042
     Dates: start: 20230509, end: 20230926
  6. HEVIRAN COMFORT [Concomitant]
     Indication: Product used for unknown indication
     Dates: start: 2012
  7. HEVIRAN COMFORT [Concomitant]
     Dates: start: 20200715
  8. ASPIRIN [Concomitant]
     Active Substance: ASPIRIN
     Indication: Product used for unknown indication
     Dates: start: 20200715
  9. ACURENAL [Concomitant]
     Indication: Hypertension
     Dates: start: 2015
  10. BISEPTOL [Concomitant]
     Active Substance: SULFAMETHOXAZOLE\TRIMETHOPRIM
     Indication: Product used for unknown indication
     Dates: start: 20230509
  11. FERROUS SULFATE [Concomitant]
     Active Substance: FERROUS SULFATE
     Indication: Product used for unknown indication
     Dates: start: 20231219
  12. NORFLOXACIN [Concomitant]
     Active Substance: NORFLOXACIN
     Indication: Urinary tract infection
     Dates: start: 20240827
  13. CEFTRIAXONE [Concomitant]
     Active Substance: CEFTRIAXONE
     Indication: Product used for unknown indication
  14. GENTAMICIN [Concomitant]
     Active Substance: GENTAMICIN
     Indication: Product used for unknown indication

REACTIONS (1)
  - Squamous cell carcinoma of lung [Recovered/Resolved]

NARRATIVE: CASE EVENT DATE: 20240926
